FAERS Safety Report 23405347 (Version 1)
Quarter: 2024Q1

REPORT INFORMATION
  Report Type: Spontaneous
  Country: BR (occurrence: BR)
  Receive Date: 20240116
  Receipt Date: 20240116
  Transmission Date: 20240410
  Serious: Yes (Disabling)
  Sender: FDA-Public Use
  Company Number: BR-SA-SAC20240115000813

PATIENT
  Age: 69 Year
  Sex: Male
  Weight: 108 kg

DRUGS (5)
  1. ARAVA [Suspect]
     Active Substance: LEFLUNOMIDE
     Indication: Rheumatic disorder
     Dosage: 20 MG, QD
     Route: 048
     Dates: start: 2017
  2. METHOTREXATE [Concomitant]
     Active Substance: METHOTREXATE
     Indication: Psoriasis
     Dosage: 4 DF, QW (4 TABLETS ON ONE DAY OF THE WEEK)
     Route: 065
     Dates: start: 2017
  3. PROZAC [Concomitant]
     Active Substance: FLUOXETINE HYDROCHLORIDE
     Indication: Blood pressure abnormal
     Dosage: UNK, HS
     Route: 048
     Dates: start: 2017
  4. OMEPRAZOLE [Concomitant]
     Active Substance: OMEPRAZOLE
     Indication: Gastrointestinal disorder
     Dosage: UNK, QD (EVERY DAY ON AN EMPTY STOMACH IN THE MORNING)
     Route: 048
     Dates: start: 2016
  5. RAMIPRIL [Concomitant]
     Active Substance: RAMIPRIL
     Indication: Blood pressure abnormal
     Dosage: UNK, QD (EVERY DAY IN THE MORNING)
     Route: 048

REACTIONS (4)
  - Gait inability [Not Recovered/Not Resolved]
  - Arthritis [Not Recovered/Not Resolved]
  - Condition aggravated [Not Recovered/Not Resolved]
  - Joint swelling [Not Recovered/Not Resolved]
